FAERS Safety Report 21715702 (Version 1)
Quarter: 2022Q4

REPORT INFORMATION
  Report Type: Spontaneous
  Country: US (occurrence: US)
  Receive Date: 20221212
  Receipt Date: 20221212
  Transmission Date: 20230113
  Serious: No
  Sender: FDA-Public Use
  Company Number: US-PFIZER INC-PV202200121004

PATIENT

DRUGS (4)
  1. LORLATINIB [Suspect]
     Active Substance: LORLATINIB
     Indication: Non-small cell lung cancer metastatic
     Dosage: UNK
  2. CARBOPLATIN [Concomitant]
     Active Substance: CARBOPLATIN
     Dosage: UNK
  3. DOCETAXEL [Concomitant]
     Active Substance: DOCETAXEL
     Dosage: UNK
  4. ATEZOLIZUMAB [Concomitant]
     Active Substance: ATEZOLIZUMAB
     Dosage: UNK

REACTIONS (1)
  - Neoplasm progression [Unknown]
